FAERS Safety Report 6277213-X (Version None)
Quarter: 2009Q3

REPORT INFORMATION
  Report Type: 
  Country: None (occurrence: None)
  Receive Date: 20090722
  Receipt Date: 20090216
  Transmission Date: 20100115
  Serious: No
  Sender: FDA-Public Use
  Company Number: US-BRISTOL-MYERS SQUIBB COMPANY-14507883

PATIENT

DRUGS (4)
  1. COUMADIN [Suspect]
  2. KEPPRA [Concomitant]
  3. CRESTOR [Concomitant]
  4. CALCIUM [Concomitant]

REACTIONS (1)
  - RASH [None]
